FAERS Safety Report 14967235 (Version 1)
Quarter: 2018Q2

REPORT INFORMATION
  Report Type: Spontaneous
  Country: IT (occurrence: IT)
  Receive Date: 20180604
  Receipt Date: 20180604
  Transmission Date: 20180711
  Serious: No
  Sender: FDA-Public Use
  Company Number: IT-CHEPLA-1934456

PATIENT
  Age: 53 Year
  Sex: Male

DRUGS (2)
  1. ALL-TRANS-RETINOIC ACID (ATRA) [Suspect]
     Active Substance: TRETINOIN
     Indication: CHLOROMA
     Dosage: GIVEN ORALLY AT A DOSE OF 45 MG/M2 PER DAY, IN TWO DAILY ADMINISTRATIONS, 3 CONSECUTIVE DAYS A WEEK
     Route: 048
  2. INTERFERON ALFA-2A [Suspect]
     Active Substance: INTERFERON ALFA-2A
     Indication: CHLOROMA
     Dosage: DOSE: 3 X 10^6 IU GIVEN INTRAMUSCULARLY, THREE TIMES A WEEK.
     Route: 030

REACTIONS (4)
  - Hypercholesterolaemia [Recovered/Resolved]
  - Hypertriglyceridaemia [Recovered/Resolved]
  - Product use in unapproved indication [Unknown]
  - Dry skin [Recovered/Resolved]
